FAERS Safety Report 23847701 (Version 1)
Quarter: 2024Q2

REPORT INFORMATION
  Report Type: Spontaneous
  Country: US (occurrence: None)
  Receive Date: 20240510
  Receipt Date: 20240510
  Transmission Date: 20240716
  Serious: No
  Sender: FDA-Public Use
  Company Number: None

PATIENT
  Age: 64 Year
  Sex: Female

DRUGS (1)
  1. AMBRISENTAN [Suspect]
     Active Substance: AMBRISENTAN
     Indication: Pulmonary arterial hypertension
     Dosage: 5MG QD ORAL
     Route: 048
     Dates: start: 20240417, end: 20240430

REACTIONS (5)
  - Headache [None]
  - Oedema peripheral [None]
  - Periorbital swelling [None]
  - Nasal congestion [None]
  - Weight abnormal [None]

NARRATIVE: CASE EVENT DATE: 20240430
